FAERS Safety Report 6406454-3 (Version None)
Quarter: 2009Q4

REPORT INFORMATION
  Report Type: 
  Country: None (occurrence: None)
  Receive Date: 20091014
  Receipt Date: 20090930
  Transmission Date: 20100525
  Serious: Yes (Other)
  Sender: FDA-Public Use
  Company Number: 1022556-2009-00235

PATIENT
  Sex: Female
  Weight: 90.7194 kg

DRUGS (6)
  1. BULLFROG MARATHON MIST SPF 36 [Suspect]
     Indication: PROPHYLAXIS AGAINST SOLAR RADIATION
     Dates: start: 20090605
  2. LEXAPRO [Concomitant]
  3. ABILIFY [Concomitant]
  4. PROVIGIL [Concomitant]
  5. LORATADINE [Concomitant]
  6. PREVACID [Concomitant]

REACTIONS (5)
  - BLISTER [None]
  - PAIN [None]
  - SKIN EXFOLIATION [None]
  - SKIN SWELLING [None]
  - SUNBURN [None]
